FAERS Safety Report 11004167 (Version 1)
Quarter: 2015Q2

REPORT INFORMATION
  Report Type: Spontaneous
  Country: GB (occurrence: GB)
  Receive Date: 20150409
  Receipt Date: 20150409
  Transmission Date: 20150821
  Serious: Yes (Disabling, Other)
  Sender: FDA-Public Use
  Company Number: GB-SUN PHARMACEUTICAL INDUSTRIES LTD-2015RR-95068

PATIENT

DRUGS (3)
  1. ATORVASTATIN [Suspect]
     Active Substance: ATORVASTATIN
     Indication: CEREBROVASCULAR ACCIDENT PROPHYLAXIS
     Dosage: 10 MG, DAILY
     Route: 048
     Dates: start: 20140116, end: 20141221
  2. METFORMIN [Concomitant]
     Active Substance: METFORMIN HYDROCHLORIDE
     Indication: PRODUCT USED FOR UNKNOWN INDICATION
     Dosage: UNK
     Route: 065
  3. LISINOPRIL. [Concomitant]
     Active Substance: LISINOPRIL
     Indication: PRODUCT USED FOR UNKNOWN INDICATION
     Dosage: UNK
     Route: 065

REACTIONS (3)
  - Muscular weakness [Not Recovered/Not Resolved]
  - Pelvic floor muscle weakness [Not Recovered/Not Resolved]
  - Polymyositis [Unknown]

NARRATIVE: CASE EVENT DATE: 20141105
